APPROVED DRUG PRODUCT: BYVALSON
Active Ingredient: NEBIVOLOL HYDROCHLORIDE; VALSARTAN
Strength: EQ 5MG BASE;80MG
Dosage Form/Route: TABLET;ORAL
Application: N206302 | Product #001
Applicant: ABBVIE INC
Approved: Jun 3, 2016 | RLD: Yes | RS: No | Type: DISCN

PATENTS:
Patent 7838552 | Expires: Oct 4, 2027
Patent 7803838 | Expires: Aug 29, 2026